FAERS Safety Report 21236626 (Version 1)
Quarter: 2022Q3

REPORT INFORMATION
  Report Type: Spontaneous
  Country: ZA (occurrence: ZA)
  Receive Date: 20220822
  Receipt Date: 20220822
  Transmission Date: 20221027
  Serious: Yes (Other)
  Sender: FDA-Public Use
  Company Number: ZA-NEBO-PC008970

PATIENT
  Age: 66 Year
  Sex: Male

DRUGS (1)
  1. IRON ISOMALTOSIDE 1000 [Suspect]
     Active Substance: IRON ISOMALTOSIDE 1000
     Indication: Iron deficiency anaemia
     Route: 050
     Dates: start: 20220812, end: 20220812

REACTIONS (5)
  - Acute myocardial infarction [Unknown]
  - Blood pressure decreased [Unknown]
  - Nausea [Unknown]
  - Rash [Unknown]
  - Head discomfort [Unknown]

NARRATIVE: CASE EVENT DATE: 20220812
